FAERS Safety Report 8389499-6 (Version None)
Quarter: 2012Q2

REPORT INFORMATION
  Report Type: 
  Country: None (occurrence: None)
  Receive Date: 20120528
  Receipt Date: 20120508
  Transmission Date: 20120825
  Serious: No
  Sender: FDA-Public Use
  Company Number: US-BAYER-2012-046469

PATIENT

DRUGS (4)
  1. NAPROXEN SODIUM [Suspect]
     Indication: PAIN
     Route: 048
  2. ACETAMINOPHEN [Concomitant]
     Indication: PAIN
  3. ADVIL [Concomitant]
     Indication: PAIN
  4. ROBAXACET [Concomitant]
     Indication: PAIN

REACTIONS (1)
  - PAIN [None]
